FAERS Safety Report 6670286-1 (Version None)
Quarter: 2010Q2

REPORT INFORMATION
  Report Type: 
  Country: None (occurrence: None)
  Receive Date: 20100405
  Receipt Date: 20100323
  Transmission Date: 20101027
  Serious: Yes (Hospitalization)
  Sender: FDA-Public Use
  Company Number: 2010BM000081

PATIENT
  Age: 4 Year
  Sex: Male
  Weight: 26 kg

DRUGS (4)
  1. NAGLAZYME [Suspect]
     Indication: MUCOPOLYSACCHARIDOSIS VI
     Dosage: 4 VIALS; QW; IVDRP
     Route: 041
     Dates: start: 20080916
  2. BOSENTAN [Concomitant]
  3. CAPTOPRIL [Concomitant]
  4. SILDENAFIL [Concomitant]

REACTIONS (6)
  - CONDITION AGGRAVATED [None]
  - DRUG INTERACTION [None]
  - EPISTAXIS [None]
  - MOUTH HAEMORRHAGE [None]
  - PRODUCTIVE COUGH [None]
  - PULMONARY HYPERTENSION [None]
